FAERS Safety Report 7695858 (Version 4)
Quarter: 2014Q1

REPORT INFORMATION
  Report Type: Spontaneous
  Country: US (occurrence: US)
  Receive Date: 20101207
  Receipt Date: 20140206
  Transmission Date: 20141002
  Serious: Yes (Hospitalization, Other)
  Sender: FDA-Public Use
  Company Number: US-BAYER-2010-001469

PATIENT
  Age: 26 Year
  Sex: Female
  Weight: 90 kg

DRUGS (2)
  1. YAZ [Suspect]
     Dosage: UNK
     Dates: start: 200802, end: 200903
  2. ALBUTEROL [Concomitant]
     Dosage: TWO PUFFS
     Dates: start: 20090922

REACTIONS (2)
  - Gallbladder injury [None]
  - Cholelithiasis [None]
